FAERS Safety Report 9888035 (Version 1)
Quarter: 2014Q1

REPORT INFORMATION
  Report Type: Spontaneous
  Country: JP (occurrence: JP)
  Receive Date: 20140211
  Receipt Date: 20140211
  Transmission Date: 20141002
  Serious: Yes (Other)
  Sender: FDA-Public Use
  Company Number: JP-PFIZER INC-2014036325

PATIENT
  Age: 102 Day
  Sex: Female

DRUGS (6)
  1. HYDROCORTISONE SODIUM SUCCINATE [Suspect]
     Indication: BRONCHOPULMONARY DYSPLASIA
     Dosage: UNK
  2. HYDROCORTISONE SODIUM SUCCINATE [Suspect]
     Indication: INTRAUTERINE INFECTION
  3. FUROSEMIDE [Suspect]
     Indication: BRONCHOPULMONARY DYSPLASIA
  4. FUROSEMIDE [Suspect]
     Indication: INTRAUTERINE INFECTION
  5. DEXAMETHASONE [Suspect]
     Indication: BRONCHOPULMONARY DYSPLASIA
  6. DEXAMETHASONE [Suspect]
     Indication: INTRAUTERINE INFECTION

REACTIONS (1)
  - Humerus fracture [Recovering/Resolving]
